FAERS Safety Report 5035852-8 (Version None)
Quarter: 2006Q2

REPORT INFORMATION
  Report Type: 
  Country: None (occurrence: None)
  Receive Date: 20060526
  Receipt Date: 20060315
  Transmission Date: 20061013
  Serious: No
  Sender: FDA-Public Use
  Company Number: 223092

PATIENT
  Age: 43 Year
  Sex: Female

DRUGS (3)
  1. RAPTIVA [Suspect]
     Indication: PSORIASIS
     Dosage: 1, 1/WEEK, SUBCUTANEOUS
     Route: 058
     Dates: start: 20060106
  2. HYDROCHLOROTHIAZIDE [Concomitant]
  3. CYCLOSPORINE [Concomitant]

REACTIONS (2)
  - HYPOAESTHESIA [None]
  - HYPOGEUSIA [None]
